FAERS Safety Report 7233091-3 (Version None)
Quarter: 2011Q1

REPORT INFORMATION
  Report Type: 
  Country: None (occurrence: None)
  Receive Date: 20110119
  Receipt Date: 20110114
  Transmission Date: 20110831
  Serious: Yes (Death, Hospitalization)
  Sender: FDA-Public Use
  Company Number: DE-PFIZER INC-2010092206

PATIENT
  Age: 56 Year
  Sex: Female

DRUGS (10)
  1. AMLODIPINE [Concomitant]
     Dosage: 10 MG, UNK
  2. AMARYL [Concomitant]
     Dosage: 2 MG, UNK
  3. PANTOZOL [Concomitant]
     Dosage: UNK
  4. ACTRAPID [Concomitant]
     Dosage: UP TO 4X/DAY, AS NEEDED
  5. SUNITINIB MALATE [Suspect]
     Indication: RENAL CELL CARCINOMA
     Dosage: 50 MG, UNK
     Dates: start: 20100619, end: 20100717
  6. ALLOPURINOL [Concomitant]
     Dosage: 300 MG, 1X/DAY
  7. LASIX [Concomitant]
     Dosage: 40 MG, UNK
  8. BISOPROLOL [Concomitant]
     Dosage: 10 MG, UNK
  9. ACETYLCYSTEINE [Concomitant]
     Dosage: 600, 1X/DAY
  10. PARACETAMOL [Concomitant]
     Dosage: UP TO 4X/DAY, AS NEEDED

REACTIONS (3)
  - PLEURAL EFFUSION [None]
  - DISEASE PROGRESSION [None]
  - RENAL CELL CARCINOMA [None]
